FAERS Safety Report 17353657 (Version 1)
Quarter: 2020Q1

REPORT INFORMATION
  Report Type: Spontaneous
  Country: US (occurrence: US)
  Receive Date: 20200130
  Receipt Date: 20200130
  Transmission Date: 20200409
  Serious: Yes (Other)
  Sender: FDA-Public Use
  Company Number: None

PATIENT
  Age: 29 Year
  Sex: Female
  Weight: 47.25 kg

DRUGS (8)
  1. MAGNESIUM [Concomitant]
     Active Substance: MAGNESIUM
  2. TOPROL XL [Concomitant]
     Active Substance: METOPROLOL SUCCINATE
  3. B2 [Concomitant]
  4. UMCKA COLDCARE CHERRY [Suspect]
     Active Substance: PELARGONIUM SIDOIDES ROOT
     Indication: COUGH
     Dosage: ?          QUANTITY:1.5 TEASPOON(S);?
     Dates: start: 20200129, end: 20200129
  5. UMCKA COLDCARE CHERRY [Suspect]
     Active Substance: PELARGONIUM SIDOIDES ROOT
     Indication: OROPHARYNGEAL PAIN
     Dosage: ?          QUANTITY:1.5 TEASPOON(S);?
     Dates: start: 20200129, end: 20200129
  6. ZOFRAN [Concomitant]
     Active Substance: ONDANSETRON HYDROCHLORIDE
  7. MELATONIN [Concomitant]
     Active Substance: MELATONIN
  8. IMITREX [Concomitant]
     Active Substance: SUMATRIPTAN SUCCINATE

REACTIONS (4)
  - Urticaria [None]
  - Rash erythematous [None]
  - Rash [None]
  - Rash pruritic [None]

NARRATIVE: CASE EVENT DATE: 20200129
